FAERS Safety Report 16062328 (Version 1)
Quarter: 2019Q1

REPORT INFORMATION
  Report Type: Spontaneous
  Country: US (occurrence: US)
  Receive Date: 20190312
  Receipt Date: 20190312
  Transmission Date: 20190418
  Serious: No
  Sender: FDA-Public Use
  Company Number: US-BAYER-2019-049143

PATIENT

DRUGS (11)
  1. EXENATIDE. [Suspect]
     Active Substance: EXENATIDE
  2. CLONAZEPAM. [Suspect]
     Active Substance: CLONAZEPAM
  3. DICLOXACILLIN [Suspect]
     Active Substance: DICLOXACILLIN
  4. SULFAMETHOXAZOLE [Suspect]
     Active Substance: SULFAMETHOXAZOLE
  5. CIPRO [Suspect]
     Active Substance: CIPROFLOXACIN HYDROCHLORIDE
     Dosage: UNK
  6. TRAMADOL. [Suspect]
     Active Substance: TRAMADOL
  7. LYRICA [Suspect]
     Active Substance: PREGABALIN
  8. BAYER ASPIRIN [Suspect]
     Active Substance: ASPIRIN
     Dosage: UNK
  9. RISPERIDONE. [Suspect]
     Active Substance: RISPERIDONE
  10. GABAPENTIN. [Suspect]
     Active Substance: GABAPENTIN
  11. CEFUROXIME AXETIL. [Suspect]
     Active Substance: CEFUROXIME AXETIL
     Dosage: UNK

REACTIONS (3)
  - Drug hypersensitivity [Unknown]
  - Swelling [None]
  - Abdominal discomfort [None]
